FAERS Safety Report 19169400 (Version 1)
Quarter: 2021Q2

REPORT INFORMATION
  Report Type: Report from Study
  Country: None (occurrence: US)
  Receive Date: 20210422
  Receipt Date: 20210422
  Transmission Date: 20210717
  Serious: Yes (Hospitalization)
  Sender: FDA-Public Use
  Company Number: US-TAKEDA-ALL1-2012-04721

PATIENT
  Age: 7 Year
  Sex: Male
  Weight: 29.4 kg

DRUGS (5)
  1. IDURSULFASE [Suspect]
     Active Substance: IDURSULFASE
     Dosage: 0.72 MG/KG
     Route: 065
     Dates: start: 20110505
  2. IDURSULFASE [Suspect]
     Active Substance: IDURSULFASE
     Indication: MUCOPOLYSACCHARIDOSIS II
     Dosage: 18 MG, 1X/WEEK (3 VIALS)
     Route: 041
     Dates: start: 20101122
  3. IDURSULFASE [Suspect]
     Active Substance: IDURSULFASE
     Dosage: 0.7 MG/KG
     Route: 065
     Dates: start: 20110815
  4. IDURSULFASE [Suspect]
     Active Substance: IDURSULFASE
     Dosage: 0.49 MG/KG
     Route: 065
     Dates: start: 20130710
  5. IDURSULFASE [Suspect]
     Active Substance: IDURSULFASE
     Dosage: 0.61 MG/KG
     Route: 065
     Dates: start: 20120413

REACTIONS (5)
  - Ear tube insertion [Recovered/Resolved]
  - Medical observation [Recovered/Resolved]
  - Tonsillectomy [Recovered/Resolved]
  - Adenoidectomy [Recovered/Resolved]
  - Surgery [Unknown]

NARRATIVE: CASE EVENT DATE: 20110928
